FAERS Safety Report 11059667 (Version 1)
Quarter: 2015Q2

REPORT INFORMATION
  Report Type: Report from Study
  Country: US (occurrence: US)
  Receive Date: 20150423
  Receipt Date: 20150423
  Transmission Date: 20150821
  Serious: Yes (Other)
  Sender: FDA-Public Use
  Company Number: US-SA-2014SA090582

PATIENT
  Age: 48 Year
  Sex: Female

DRUGS (3)
  1. AUBAGIO [Suspect]
     Active Substance: TERIFLUNOMIDE
     Indication: MULTIPLE SCLEROSIS
     Route: 048
  2. AUBAGIO [Suspect]
     Active Substance: TERIFLUNOMIDE
     Indication: MULTIPLE SCLEROSIS
     Route: 048
     Dates: start: 20140615
  3. COPAXONE [Concomitant]
     Active Substance: GLATIRAMER ACETATE
     Dates: start: 20120201, end: 20140601

REACTIONS (6)
  - Peripheral swelling [Unknown]
  - Drug dose omission [Unknown]
  - Tenderness [Unknown]
  - Surgery [Unknown]
  - Inappropriate schedule of drug administration [Unknown]
  - Erythema [Unknown]

NARRATIVE: CASE EVENT DATE: 2014
